FAERS Safety Report 7080539-3 (Version None)
Quarter: 2010Q4

REPORT INFORMATION
  Report Type: 
  Country: None (occurrence: None)
  Receive Date: 20101103
  Receipt Date: 20101028
  Transmission Date: 20110411
  Serious: Yes (Hospitalization, Disabling)
  Sender: FDA-Public Use
  Company Number: FR-SANOFI-AVENTIS-2010SA066166

PATIENT
  Age: 56 Year
  Sex: Female

DRUGS (12)
  1. OXALIPLATIN [Suspect]
     Route: 041
     Dates: start: 20100120, end: 20100120
  2. OXALIPLATIN [Suspect]
     Route: 041
     Dates: start: 20100809, end: 20100809
  3. BEVACIZUMAB [Suspect]
     Route: 041
     Dates: start: 20100120, end: 20100120
  4. BEVACIZUMAB [Suspect]
     Route: 041
     Dates: start: 20090608, end: 20090608
  5. BEVACIZUMAB [Suspect]
     Route: 041
     Dates: start: 20100809, end: 20100809
  6. CAPECITABINE [Suspect]
     Route: 048
     Dates: start: 20100120
  7. CAPECITABINE [Suspect]
     Route: 048
     Dates: end: 20100829
  8. DEROXAT [Concomitant]
     Dates: start: 20100101
  9. XANAX [Concomitant]
     Dates: start: 20100101
  10. IRINOTECAN HCL [Concomitant]
     Dates: start: 20090608, end: 20090921
  11. FLUOROURACIL [Concomitant]
     Dates: start: 20090608, end: 20090921
  12. FOLINIC ACID [Concomitant]
     Dates: start: 20090608, end: 20090921

REACTIONS (2)
  - CEREBRAL ISCHAEMIA [None]
  - CEREBROVASCULAR ACCIDENT [None]
